FAERS Safety Report 13191411 (Version 2)
Quarter: 2017Q1

REPORT INFORMATION
  Report Type: Spontaneous
  Country: FO (occurrence: FO)
  Receive Date: 20170207
  Receipt Date: 20170215
  Transmission Date: 20170428
  Serious: Yes (Life-Threatening, Hospitalization, Other)
  Sender: FDA-Public Use
  Company Number: FO-SUN PHARMACEUTICAL INDUSTRIES LTD-2017RR-132726

PATIENT
  Age: 75 Year
  Sex: Male

DRUGS (10)
  1. FUSIDIC ACID [Interacting]
     Active Substance: FUSIDIC ACID
     Indication: ABSCESS
     Dosage: 500 MG, DAILY
     Route: 048
  2. FUSIDIC ACID [Interacting]
     Active Substance: FUSIDIC ACID
     Indication: VASCULAR STENT INFECTION
     Dosage: 500 MG, DAILY
     Route: 048
  3. MOXIFLOXACIN. [Concomitant]
     Active Substance: MOXIFLOXACIN
     Indication: VASCULAR STENT INFECTION
     Dosage: 400 MG, DAILY
     Route: 048
  4. ATORVASTATIN [Suspect]
     Active Substance: ATORVASTATIN
     Indication: HYPERLIPIDAEMIA
     Dosage: 80 MG, DAILY
     Route: 065
  5. MOXIFLOXACIN. [Concomitant]
     Active Substance: MOXIFLOXACIN
     Indication: INFECTIVE ANEURYSM
     Dosage: 400 MG, DAILY
     Route: 048
  6. MOXIFLOXACIN. [Concomitant]
     Active Substance: MOXIFLOXACIN
     Indication: ANTIBIOTIC PROPHYLAXIS
     Dosage: 400 MG, DAILY
     Route: 048
  7. MOXIFLOXACIN. [Concomitant]
     Active Substance: MOXIFLOXACIN
     Indication: ABSCESS
     Dosage: 400 MG, DAILY
     Route: 048
  8. RIVAROXABAN [Concomitant]
     Active Substance: RIVAROXABAN
     Indication: ATRIAL FIBRILLATION
     Dosage: UNK
     Route: 065
  9. FUSIDIC ACID [Interacting]
     Active Substance: FUSIDIC ACID
     Indication: ANTIBIOTIC PROPHYLAXIS
     Dosage: 500 MG, DAILY
     Route: 048
  10. FUSIDIC ACID [Interacting]
     Active Substance: FUSIDIC ACID
     Indication: INFECTIVE ANEURYSM
     Dosage: 500 MG, DAILY
     Route: 048

REACTIONS (2)
  - Drug interaction [Recovering/Resolving]
  - Rhabdomyolysis [Recovering/Resolving]
